FAERS Safety Report 4115570 (Version 7)
Quarter: 2017Q3

REPORT INFORMATION
  Report Type: Spontaneous
  Country: CA (occurrence: CA)
  Receive Date: 20040322
  Receipt Date: 20170713
  Transmission Date: 20171128
  Serious: Yes (Death, Hospitalization)
  Sender: FDA-Public Use
  Company Number: CA-JNJFOC-20040302321

PATIENT
  Age: 15 Year
  Sex: Female
  Weight: 44.45 kg

DRUGS (4)
  1. DURAGESIC [Suspect]
     Active Substance: FENTANYL
     Indication: HEADACHE
     Route: 062
     Dates: start: 20031001, end: 20031002
  2. MAXALT [Concomitant]
     Active Substance: RIZATRIPTAN BENZOATE
  3. TYLENOL WITH CODEINE [Suspect]
     Active Substance: ACETAMINOPHEN\CODEINE PHOSPHATE
     Indication: PRODUCT USED FOR UNKNOWN INDICATION
  4. AMOXICILLIN. [Concomitant]
     Active Substance: AMOXICILLIN

REACTIONS (7)
  - Death [Fatal]
  - Hypopnoea [Recovered/Resolved with Sequelae]
  - Cardiac arrest [Recovered/Resolved with Sequelae]
  - Off label use [Fatal]
  - Unresponsive to stimuli [Recovered/Resolved with Sequelae]
  - Pneumonia [Unknown]
  - Brain injury [Fatal]

NARRATIVE: CASE EVENT DATE: 20031001
